FAERS Safety Report 7893012-7 (Version None)
Quarter: 2011Q4

REPORT INFORMATION
  Report Type: 
  Country: None (occurrence: None)
  Receive Date: 20111104
  Receipt Date: 20111026
  Transmission Date: 20120403
  Serious: Yes (Hospitalization)
  Sender: FDA-Public Use
  Company Number: FR-NOVOPROD-338434

PATIENT

DRUGS (7)
  1. PREDNISONE [Concomitant]
     Dosage: UNK
     Dates: start: 20110919
  2. OMEPRAZOLE [Concomitant]
     Indication: RADIATION OESOPHAGITIS
     Dosage: 40 MG, QD
     Dates: start: 20110219, end: 20110918
  3. NEXIUM [Suspect]
     Dosage: 20 MG, QD
     Route: 048
     Dates: start: 20110921
  4. REPAGLINIDE [Suspect]
     Indication: TYPE 2 DIABETES MELLITUS
     Dosage: 3.5 MG, QD
     Route: 048
     Dates: start: 20110501, end: 20110925
  5. EBASTINE [Suspect]
     Indication: PRODUCT USED FOR UNKNOWN INDICATION
     Dosage: 5 MG, QD
     Route: 048
     Dates: start: 20110501, end: 20110925
  6. OMEPRAZOLE [Concomitant]
     Dosage: 20 MG, QD
     Dates: start: 20110921
  7. NEXIUM [Suspect]
     Indication: RADIATION OESOPHAGITIS
     Dosage: 40 MG, QD
     Route: 048
     Dates: start: 20110219, end: 20110918

REACTIONS (1)
  - HAEMOLYTIC ANAEMIA [None]
